FAERS Safety Report 4294222-0 (Version None)
Quarter: 2004Q1

REPORT INFORMATION
  Report Type: 
  Country: None (occurrence: None)
  Receive Date: 20040211
  Receipt Date: 20040128
  Transmission Date: 20041129
  Serious: Yes (Other)
  Sender: FDA-Public Use
  Company Number: USA040157736

PATIENT
  Age: 55 Year
  Sex: Male
  Weight: 127 kg

DRUGS (2)
  1. HUMULIN R [Suspect]
     Indication: DIABETES MELLITUS NON-INSULIN-DEPENDENT
     Dosage: 15 U/2 DAY
     Dates: start: 19900101
  2. HUMULIN N [Suspect]
     Indication: DIABETES MELLITUS NON-INSULIN-DEPENDENT
     Dosage: 35 U/2 DAY
     Dates: start: 19900101

REACTIONS (5)
  - DIABETIC FOOT [None]
  - FOOT AMPUTATION [None]
  - GANGRENE [None]
  - OSTEOMYELITIS [None]
  - SKIN ULCER [None]
